FAERS Safety Report 8025641-4 (Version None)
Quarter: 2012Q1

REPORT INFORMATION
  Report Type: 
  Country: None (occurrence: None)
  Receive Date: 20120105
  Receipt Date: 20120103
  Transmission Date: 20120608
  Serious: No
  Sender: FDA-Public Use
  Company Number: US-BAYER-2012-001216

PATIENT

DRUGS (2)
  1. ALEVE (CAPLET) [Suspect]
     Indication: EAR PAIN
  2. ALEVE (CAPLET) [Suspect]
     Indication: OROPHARYNGEAL PAIN

REACTIONS (2)
  - OROPHARYNGEAL PAIN [None]
  - EAR PAIN [None]
